FAERS Safety Report 11537486 (Version 1)
Quarter: 2015Q3

REPORT INFORMATION
  Report Type: Spontaneous
  Country: US (occurrence: US)
  Receive Date: 20150922
  Receipt Date: 20150922
  Transmission Date: 20151125
  Serious: No
  Sender: FDA-Public Use
  Company Number: US-PFIZER INC-2015312558

PATIENT
  Sex: Male

DRUGS (2)
  1. SYNTHROID [Suspect]
     Active Substance: LEVOTHYROXINE SODIUM
     Dosage: 175 ?G, UNK
  2. CYTOMEL [Suspect]
     Active Substance: LIOTHYRONINE SODIUM
     Dosage: UNK(0.25 UNKNOWN)

REACTIONS (5)
  - Alopecia [Unknown]
  - Poor quality sleep [Unknown]
  - Feeling cold [Unknown]
  - Fatigue [Unknown]
  - Loss of libido [Unknown]
